FAERS Safety Report 5596846-7 (Version None)
Quarter: 2008Q1

REPORT INFORMATION
  Report Type: 
  Country: None (occurrence: None)
  Receive Date: 20080119
  Receipt Date: 20080108
  Transmission Date: 20080703
  Serious: Yes (Other)
  Sender: FDA-Public Use
  Company Number: US-PFIZER INC-2008003986

PATIENT
  Sex: Female

DRUGS (5)
  1. CHANTIX [Suspect]
  2. ZETIA [Concomitant]
  3. PRILOSEC [Concomitant]
  4. ALL OTHER THERAPEUTIC PRODUCTS [Concomitant]
  5. WARFARIN SODIUM [Concomitant]

REACTIONS (9)
  - AGGRESSION [None]
  - AGITATION [None]
  - ANGER [None]
  - ANXIETY [None]
  - DEPRESSED MOOD [None]
  - DEPRESSION [None]
  - IRRITABILITY [None]
  - NIGHTMARE [None]
  - TREMOR [None]
